FAERS Safety Report 18164675 (Version 1)
Quarter: 2020Q3

REPORT INFORMATION
  Report Type: Spontaneous
  Country: ES (occurrence: ES)
  Receive Date: 20200818
  Receipt Date: 20200818
  Transmission Date: 20201103
  Serious: Yes (Hospitalization)
  Sender: FDA-Public Use
  Company Number: ES-CELGENEUS-ESP-20200803141

PATIENT
  Age: 61 Year
  Sex: Female
  Weight: 56 kg

DRUGS (4)
  1. LENALIDOMIDE [Suspect]
     Active Substance: LENALIDOMIDE
     Indication: PLASMA CELL MYELOMA
     Dosage: 10 MILLIGRAM
     Route: 048
     Dates: start: 201804
  2. INFANRIX HEXA [Concomitant]
     Active Substance: DIPHTHERIA AND TETANUS TOXOIDS AND ACELLULAR PERTUSSIS ADSORBED, INACTIVATED POLIOVIRUS AND HAEMOPHILUS B CONJUGATE AND HEPATITIS B VIRUS VACCINE
     Indication: TRANSPLANT
     Dosage: 1 VIAL + 1 SOLVENT PRE?FILLED SYRINGE
     Route: 030
     Dates: start: 20200526, end: 20200526
  3. LENALIDOMIDE [Suspect]
     Active Substance: LENALIDOMIDE
     Indication: NEUTROPENIA
     Dosage: 5 MILLIGRAM
     Route: 048
     Dates: start: 20200520
  4. LENALIDOMIDE [Suspect]
     Active Substance: LENALIDOMIDE
     Indication: RESPIRATORY TRACT INFECTION

REACTIONS (7)
  - Diarrhoea [Recovered/Resolved]
  - Procalcitonin increased [Recovered/Resolved]
  - Nausea [Recovered/Resolved]
  - Vomiting [Recovered/Resolved]
  - C-reactive protein increased [Recovered/Resolved]
  - Pyrexia [Recovered/Resolved]
  - Hepatic enzyme increased [Recovered/Resolved]

NARRATIVE: CASE EVENT DATE: 20200526
